FAERS Safety Report 14514227 (Version 2)
Quarter: 2018Q1

REPORT INFORMATION
  Report Type: Spontaneous
  Country: US (occurrence: US)
  Receive Date: 20180209
  Receipt Date: 20180327
  Transmission Date: 20180509
  Serious: Yes (Hospitalization)
  Sender: FDA-Public Use
  Company Number: US-VIFOR (INTERNATIONAL) INC.-VIT-2018-01378

PATIENT
  Sex: Female
  Weight: 210.2 kg

DRUGS (10)
  1. VERAPAMIL HYDROCHLORIDE. [Concomitant]
     Active Substance: VERAPAMIL HYDROCHLORIDE
  2. VELTASSA [Suspect]
     Active Substance: PATIROMER
     Indication: HYPERKALAEMIA
     Route: 048
     Dates: start: 20160506
  3. DOXYCYCLINE HYCLATE. [Concomitant]
     Active Substance: DOXYCYCLINE HYCLATE
  4. ACETYLSALICYLIC ACID [Concomitant]
     Active Substance: ASPIRIN
  5. ALLOPURINOL. [Concomitant]
     Active Substance: ALLOPURINOL
  6. BENAZEPRIL HYDROCHLORIDE/AMLODIPINE BESILATE [Concomitant]
  7. CLOPIDOGREL BISULFATE. [Concomitant]
     Active Substance: CLOPIDOGREL BISULFATE
  8. COREG [Concomitant]
     Active Substance: CARVEDILOL
  9. FLUCONAZOLE. [Concomitant]
     Active Substance: FLUCONAZOLE
  10. ERGOCALCIFEROL. [Concomitant]
     Active Substance: ERGOCALCIFEROL

REACTIONS (3)
  - Condition aggravated [Unknown]
  - Localised infection [Unknown]
  - Wound secretion [Unknown]
